FAERS Safety Report 22323279 (Version 2)
Quarter: 2023Q2

REPORT INFORMATION
  Report Type: Spontaneous
  Country: JP (occurrence: JP)
  Receive Date: 20230516
  Receipt Date: 20230601
  Transmission Date: 20230722
  Serious: Yes (Life-Threatening)
  Sender: FDA-Public Use
  Company Number: JP-ORPHANEU-2023002943

PATIENT

DRUGS (5)
  1. CARBAGLU [Suspect]
     Active Substance: CARGLUMIC ACID
     Indication: Propionic acidaemia
     Dosage: 200 MG/KG/DAY
     Route: 065
     Dates: start: 20230302, end: 202303
  2. DEXTROSE [Concomitant]
     Active Substance: DEXTROSE\DEXTROSE MONOHYDRATE
     Indication: Propionic acidaemia
     Dosage: UNK
  3. LEVOCARNITINE [Concomitant]
     Active Substance: LEVOCARNITINE
     Indication: Propionic acidaemia
     Dosage: 100 MG/KG/DAY
  4. SODIUM BENZOATE [Concomitant]
     Active Substance: SODIUM BENZOATE
     Indication: Propionic acidaemia
     Dosage: 200 MG/KG/DAY
  5. LACTULOSE [Concomitant]
     Active Substance: LACTULOSE
     Indication: Propionic acidaemia
     Dosage: UNK

REACTIONS (5)
  - Staphylococcal sepsis [Recovered/Resolved]
  - Disseminated intravascular coagulation [Recovered/Resolved]
  - Device related infection [Recovered/Resolved]
  - Moaning [Unknown]
  - Somnolence [Unknown]

NARRATIVE: CASE EVENT DATE: 20230301
